FAERS Safety Report 11918632 (Version 2)
Quarter: 2016Q2

REPORT INFORMATION
  Report Type: Spontaneous
  Country: US (occurrence: US)
  Receive Date: 20160115
  Receipt Date: 20160429
  Transmission Date: 20160815
  Serious: No
  Sender: FDA-Public Use
  Company Number: US-JNJFOC-20151224602

PATIENT
  Sex: Female
  Weight: 86.64 kg

DRUGS (6)
  1. DURAGESIC [Suspect]
     Active Substance: FENTANYL
     Indication: ROAD TRAFFIC ACCIDENT
     Route: 062
     Dates: start: 2002, end: 2002
  2. DURAGESIC [Suspect]
     Active Substance: FENTANYL
     Indication: INTERVERTEBRAL DISC DEGENERATION
     Route: 062
     Dates: start: 2002, end: 2002
  3. DURAGESIC [Suspect]
     Active Substance: FENTANYL
     Indication: ROAD TRAFFIC ACCIDENT
     Route: 062
     Dates: start: 2002, end: 2002
  4. DURAGESIC [Suspect]
     Active Substance: FENTANYL
     Indication: INTERVERTEBRAL DISC DEGENERATION
     Route: 062
     Dates: start: 2002, end: 2002
  5. DURAGESIC [Suspect]
     Active Substance: FENTANYL
     Indication: INTERVERTEBRAL DISC DEGENERATION
     Route: 062
     Dates: start: 2002, end: 2002
  6. DURAGESIC [Suspect]
     Active Substance: FENTANYL
     Indication: ROAD TRAFFIC ACCIDENT
     Route: 062
     Dates: start: 2002, end: 2002

REACTIONS (4)
  - Back pain [Unknown]
  - Fear [Unknown]
  - Spinal disorder [Unknown]
  - Drug ineffective [Unknown]

NARRATIVE: CASE EVENT DATE: 2002
